FAERS Safety Report 9669567 (Version 1)
Quarter: 2013Q4

REPORT INFORMATION
  Report Type: Spontaneous
  Country: US (occurrence: None)
  Receive Date: 20131104
  Receipt Date: 20131104
  Transmission Date: 20140711
  Serious: Yes (Other)
  Sender: FDA-Public Use
  Company Number: None

PATIENT
  Age: 53 Year
  Sex: Male
  Weight: 83.92 kg

DRUGS (1)
  1. CIPROFLOXACIN [Suspect]
     Indication: GASTRIC DISORDER
     Dosage: 1 PILL
     Route: 048
     Dates: start: 20130515, end: 20130522

REACTIONS (3)
  - Musculoskeletal pain [None]
  - Tendon disorder [None]
  - Activities of daily living impaired [None]
